FAERS Safety Report 8815410 (Version 1)
Quarter: 2012Q4

REPORT INFORMATION
  Report Type: Report from Study
  Country: US (occurrence: US)
  Receive Date: 20120928
  Receipt Date: 20120928
  Transmission Date: 20130627
  Serious: Yes (Death, Hospitalization)
  Sender: FDA-Public Use
  Company Number: US-009507513-1108USA00892

PATIENT
  Age: 61 Year
  Sex: Male
  Weight: 79.11 kg

DRUGS (11)
  1. DECADRON TABLETS [Suspect]
     Indication: MULTIPLE MYELOMA
     Dosage: 20 mg, QW
     Route: 048
     Dates: start: 20110414
  2. VELCADE [Suspect]
     Indication: MULTIPLE MYELOMA
     Dosage: 1.3 mg/m2, UNK
     Route: 048
     Dates: start: 20110414, end: 20110512
  3. ALLOPURINOL [Concomitant]
  4. COUMADIN [Concomitant]
  5. TRACLEER [Concomitant]
  6. NIACIN [Concomitant]
  7. FOLGARD [Concomitant]
  8. LOVENOX [Concomitant]
  9. ZOFRAN [Concomitant]
  10. NORCO [Concomitant]
  11. AMBIEN [Concomitant]

REACTIONS (5)
  - Respiratory failure [Fatal]
  - Oedema peripheral [Unknown]
  - Hypoxia [Fatal]
  - Renal failure [Fatal]
  - Dyspnoea [Unknown]
